FAERS Safety Report 4584297-3 (Version None)
Quarter: 2005Q1

REPORT INFORMATION
  Report Type: 
  Country: None (occurrence: None)
  Receive Date: 20050125
  Receipt Date: 20041026
  Transmission Date: 20050727
  Serious: No
  Sender: FDA-Public Use
  Company Number: USA041082332

PATIENT
  Age: 70 Year
  Sex: Female

DRUGS (3)
  1. FORTEO [Suspect]
     Indication: OSTEOPOROSIS
     Dates: start: 20040801
  2. ACTONEL [Concomitant]
  3. FOSAMAX [Concomitant]

REACTIONS (2)
  - BACK PAIN [None]
  - PAIN IN EXTREMITY [None]
